FAERS Safety Report 20633574 (Version 1)
Quarter: 2022Q1

REPORT INFORMATION
  Report Type: Report from Study
  Country: BG (occurrence: BG)
  Receive Date: 20220324
  Receipt Date: 20220324
  Transmission Date: 20220423
  Serious: Yes (Hospitalization)
  Sender: FDA-Public Use
  Company Number: BG-PFIZER INC-202101193056

PATIENT
  Age: 65 Year
  Sex: Male
  Weight: 90 kg

DRUGS (7)
  1. NIRMATRELVIR [Suspect]
     Active Substance: NIRMATRELVIR
     Indication: COVID-19
     Dosage: 300 MG, 2X/DAY (EVERY 12 HOURS)-PLANNED FOR 5 DAYS
     Route: 048
     Dates: start: 20210901, end: 20210905
  2. RITONAVIR [Suspect]
     Active Substance: RITONAVIR
     Indication: COVID-19
     Dosage: 100 MG, 2X/DAY (EVERY 12 HOURS)-PLANNED FOR 5 DAYS
     Route: 048
     Dates: start: 20210901, end: 20210905
  3. HYDROCHLOROTHIAZIDE\LOSARTAN POTASSIUM [Concomitant]
     Active Substance: HYDROCHLOROTHIAZIDE\LOSARTAN POTASSIUM
     Indication: Hypertension
     Dosage: [LOSARTAN POTASSIUM 50MG], [HYDROCHLOROTHIAZIDE 12.5MG]
     Route: 048
     Dates: start: 201908
  4. PREDNISOLONE [Concomitant]
     Active Substance: PREDNISOLONE
     Indication: COVID-19
     Dosage: 5 MG, 3X/DAY
     Route: 048
     Dates: start: 20210901, end: 20210902
  5. FAMOTIDINE [Concomitant]
     Active Substance: FAMOTIDINE
     Indication: COVID-19
     Dosage: 20 MG, 2X/DAY
     Route: 048
     Dates: start: 20210901
  6. ASPIRIN [Concomitant]
     Active Substance: ASPIRIN
     Indication: COVID-19
     Dosage: 100 MG, 1X/DAY
     Route: 048
     Dates: start: 20210901, end: 20210902
  7. BRONCHOLYTIN [EPHEDRINE HYDROCHLORIDE;GLAUCINE HYDROBROMIDE] [Concomitant]
     Indication: COVID-19
     Dosage: 5 ML, 3X/DAY
     Route: 048
     Dates: start: 20210901, end: 20210902

REACTIONS (1)
  - Pneumonia [Recovered/Resolved]

NARRATIVE: CASE EVENT DATE: 20210902
